FAERS Safety Report 7332862-2 (Version None)
Quarter: 2011Q1

REPORT INFORMATION
  Report Type: 
  Country: None (occurrence: None)
  Receive Date: 20110304
  Receipt Date: 20110224
  Transmission Date: 20110831
  Serious: Yes (Other)
  Sender: FDA-Public Use
  Company Number: US-PURDUE-USA-2010-0056254

PATIENT
  Sex: Female
  Weight: 52.154 kg

DRUGS (3)
  1. SYNTHROID [Concomitant]
     Indication: HYPOTHYROIDISM
  2. MORPHINE SULFATE [Suspect]
     Indication: PAIN
     Dosage: 15 MG, TID
     Route: 048
     Dates: start: 20060101
  3. MORPHINE SULFATE [Suspect]
     Dosage: 15 MG, SEE TEXT
     Route: 048
     Dates: start: 20100101

REACTIONS (2)
  - ATRIAL FIBRILLATION [None]
  - PALPITATIONS [None]
